FAERS Safety Report 6307303-4 (Version None)
Quarter: 2009Q3

REPORT INFORMATION
  Report Type: 
  Country: None (occurrence: None)
  Receive Date: 20090813
  Receipt Date: 20090804
  Transmission Date: 20100115
  Serious: Yes (Death, Hospitalization)
  Sender: FDA-Public Use
  Company Number: JP-PFIZER INC-2009241844

PATIENT
  Age: 77 Year

DRUGS (5)
  1. SUNITINIB MALATE [Suspect]
     Indication: RENAL CELL CARCINOMA
     Dosage: 37.5 MG, 1X/DAY
     Route: 048
     Dates: start: 20090114, end: 20090616
  2. PARIET [Concomitant]
     Dosage: UNK
     Route: 048
     Dates: start: 20080911
  3. MUCOSTA [Concomitant]
     Dosage: UNK
     Route: 048
     Dates: start: 20080911
  4. HARNAL [Concomitant]
     Dosage: UNK
     Route: 048
     Dates: start: 20080911
  5. ALOSITOL [Concomitant]
     Dosage: UNK
     Route: 048
     Dates: start: 20090528

REACTIONS (4)
  - ANAEMIA [None]
  - DISEASE PROGRESSION [None]
  - INTERSTITIAL LUNG DISEASE [None]
  - RENAL CELL CARCINOMA [None]
